FAERS Safety Report 8901267 (Version 1)
Quarter: 2012Q4

REPORT INFORMATION
  Report Type: 
  Country: ES (occurrence: ES)
  Receive Date: 20121109
  Receipt Date: 20121109
  Transmission Date: 20130627
  Serious: Yes (Hospitalization)
  Sender: FDA-Public Use
  Company Number: ES-WATSON-2012-18705

PATIENT
  Age: 40 Year
  Sex: Male

DRUGS (3)
  1. SODIUM VALPROATE (UNKNOWN) [Suspect]
     Indication: EPILEPSY
     Dosage: 1500 mg, daily
     Route: 065
  2. LEVETIRACETAM [Concomitant]
     Indication: EPILEPSY
     Dosage: 3 g, daily
     Route: 065
  3. TOPIRAMATE [Concomitant]
     Indication: EPILEPSY
     Dosage: 300 g, daily
     Route: 065

REACTIONS (3)
  - Hyperammonaemia [Recovered/Resolved]
  - Metabolic acidosis [Recovered/Resolved]
  - Drug ineffective [Recovered/Resolved]
